FAERS Safety Report 9416745 (Version 1)
Quarter: 2013Q3

REPORT INFORMATION
  Report Type: Spontaneous
  Country: TR (occurrence: None)
  Receive Date: 20130722
  Receipt Date: 20130722
  Transmission Date: 20140515
  Serious: Yes (Hospitalization)
  Sender: FDA-Public Use
  Company Number: 2013P1012020

PATIENT
  Age: 16 Year
  Sex: Female

DRUGS (1)
  1. ACYCLOVIR [Suspect]
     Indication: ENCEPHALITIS
     Route: 042

REACTIONS (3)
  - Tubulointerstitial nephritis [None]
  - Renal tubular necrosis [None]
  - Nephropathy toxic [None]
